FAERS Safety Report 26026013 (Version 2)
Quarter: 2025Q4

REPORT INFORMATION
  Report Type: Report from Study
  Country: EU (occurrence: EU)
  Receive Date: 20251111
  Receipt Date: 20251211
  Transmission Date: 20260118
  Serious: Yes (Hospitalization)
  Sender: PFIZER
  Company Number: EU-PFM-2025-05185

PATIENT
  Age: 71 Year
  Sex: Male
  Weight: 115 kg

DRUGS (34)
  1. ENCORAFENIB [Suspect]
     Active Substance: ENCORAFENIB
     Indication: Malignant melanoma
     Dosage: 450 MG, QD (1/DAY)
     Route: 048
     Dates: start: 20230801, end: 20250408
  2. ENCORAFENIB [Suspect]
     Active Substance: ENCORAFENIB
     Dosage: 450 MG, QD (1/DAY)
     Route: 048
     Dates: start: 20250414
  3. BINIMETINIB [Suspect]
     Active Substance: BINIMETINIB
     Indication: Malignant melanoma
     Dosage: 45 MG, BID (2/DAY)
     Route: 048
     Dates: start: 20230801, end: 20250408
  4. BINIMETINIB [Suspect]
     Active Substance: BINIMETINIB
     Dosage: 45 MG, BID (2/DAY)
     Route: 048
     Dates: start: 20250414
  5. LEVOTHYROXINE [Concomitant]
     Active Substance: LEVOTHYROXINE
     Dosage: UNK
     Route: 065
  6. VALSARTAN [Concomitant]
     Active Substance: VALSARTAN
     Dosage: UNK
     Route: 065
     Dates: start: 20220222
  7. SEMAGLUTIDE [Concomitant]
     Active Substance: SEMAGLUTIDE
     Dosage: UNK
     Route: 065
  8. EMPAGLIFLOZIN [Concomitant]
     Active Substance: EMPAGLIFLOZIN
     Dosage: UNK
     Route: 065
  9. ATORVASTATIN [Concomitant]
     Active Substance: ATORVASTATIN
     Dosage: UNK
     Route: 065
  10. EZETIMIBE [Concomitant]
     Active Substance: EZETIMIBE
     Dosage: UNK
     Route: 065
  11. RIVAROXABAN [Concomitant]
     Active Substance: RIVAROXABAN
     Dosage: UNK
     Route: 065
     Dates: start: 20220422
  12. RIVAROXABAN [Concomitant]
     Active Substance: RIVAROXABAN
     Dosage: UNK
     Route: 065
     Dates: start: 20250816, end: 20250820
  13. FAMOTIDINE [Concomitant]
     Active Substance: FAMOTIDINE
     Indication: Prophylaxis
     Dosage: UNK
     Route: 065
     Dates: start: 20220421
  14. CALCIUM CARBONATE [Concomitant]
     Active Substance: CALCIUM CARBONATE
     Indication: Prophylaxis
     Dosage: UNK
     Route: 065
  15. ZOLEDRONIC ACID [Concomitant]
     Active Substance: ZOLEDRONIC ACID
     Indication: Prophylaxis
     Dosage: UNK
     Route: 065
     Dates: start: 20220311
  16. POVIDON IOD [Concomitant]
     Indication: Wound infection
     Dosage: UNK
     Route: 065
     Dates: start: 20231005, end: 202310
  17. RIFAMPIN [Concomitant]
     Active Substance: RIFAMPIN
     Indication: Wound infection
     Dosage: UNK
     Route: 065
     Dates: start: 202310, end: 202310
  18. TIRBANIBULIN [Concomitant]
     Active Substance: TIRBANIBULIN
     Dosage: UNK
     Route: 065
     Dates: start: 20230623
  19. NYSTATIN [Concomitant]
     Active Substance: NYSTATIN
     Indication: Skin fissures
     Dosage: UNK
     Route: 065
     Dates: start: 20231207, end: 20240502
  20. FOLIC ACID [Concomitant]
     Active Substance: FOLIC ACID
     Indication: Fatigue
     Dosage: UNK
     Route: 065
     Dates: start: 20240307
  21. CYANOCOBALAMIN [Concomitant]
     Active Substance: CYANOCOBALAMIN
     Indication: Fatigue
     Dosage: UNK
     Route: 065
     Dates: start: 20240307
  22. INSULIN NOS [Concomitant]
     Active Substance: INSULIN NOS
     Dosage: UNK
     Route: 065
     Dates: start: 20240502
  23. MAGNESIUM [Concomitant]
     Active Substance: MAGNESIUM
     Indication: Muscle spasms
     Dosage: UNK
     Route: 065
     Dates: start: 202312, end: 202505
  24. ZINC OINTMENT [Concomitant]
     Indication: Rash pustular
     Dosage: UNK
     Route: 065
     Dates: start: 202406
  25. BETAMETHASONE DIPROPIONATE\CLOTRIMAZOLE [Concomitant]
     Active Substance: BETAMETHASONE DIPROPIONATE\CLOTRIMAZOLE
     Indication: Rash pustular
     Dosage: UNK
     Route: 065
     Dates: start: 20240624
  26. TOLAK [TENOFOVIR DISOPROXIL FUMARATE] [Concomitant]
     Dosage: UNK
     Route: 065
     Dates: start: 20240731
  27. ACTIKERALL [Concomitant]
     Dosage: UNK
     Route: 065
     Dates: start: 20240826
  28. MOMETASONE FUROATE [Concomitant]
     Active Substance: MOMETASONE FUROATE
     Indication: Rash pustular
     Dosage: UNK
     Route: 065
     Dates: start: 20240923
  29. FLUOROURACIL [Concomitant]
     Active Substance: FLUOROURACIL
     Dosage: UNK
     Route: 065
     Dates: start: 20250707, end: 20250721
  30. AMOXICILLIN [Concomitant]
     Active Substance: AMOXICILLIN
     Indication: Prophylaxis
     Dosage: UNK
     Route: 065
     Dates: start: 20250306, end: 20250316
  31. CERTOPARINUM NATRICUM [Concomitant]
     Indication: Prophylaxis
     Dosage: UNK
     Route: 065
     Dates: start: 20250813, end: 20250819
  32. AMPICILLIN SODIUM\SULBACTAM SODIUM [Concomitant]
     Active Substance: AMPICILLIN SODIUM\SULBACTAM SODIUM
     Indication: Prophylaxis
     Dosage: UNK
     Route: 065
     Dates: start: 20250813, end: 20250813
  33. ESOMEPRAZOLE [Concomitant]
     Active Substance: ESOMEPRAZOLE
     Indication: Prophylaxis
     Dosage: UNK
     Route: 065
     Dates: start: 20250818, end: 20250819
  34. RIVAROXABAN [Concomitant]
     Active Substance: RIVAROXABAN
     Indication: Prophylaxis
     Dosage: UNK
     Route: 065
     Dates: start: 20250816, end: 20250820

REACTIONS (1)
  - Actinic keratosis [Recovered/Resolved]

NARRATIVE: CASE EVENT DATE: 20251024
